FAERS Safety Report 23538890 (Version 1)
Quarter: 2024Q1

REPORT INFORMATION
  Report Type: Other
  Country: TN (occurrence: TN)
  Receive Date: 20240219
  Receipt Date: 20240219
  Transmission Date: 20240410
  Serious: Yes (Life-Threatening, Hospitalization, Other)
  Sender: FDA-Public Use
  Company Number: TN-B.Braun Medical Inc.-2153380

PATIENT
  Age: 64 Year
  Sex: Male

DRUGS (1)
  1. GLYCINE [Suspect]
     Active Substance: GLYCINE

REACTIONS (7)
  - Hyponatraemia [Unknown]
  - Haemolysis [Unknown]
  - Acute kidney injury [Unknown]
  - Oxygen saturation decreased [Unknown]
  - Blood pressure decreased [Unknown]
  - Vomiting [Unknown]
  - Nausea [Unknown]
